FAERS Safety Report 5829284-X (Version None)
Quarter: 2008Q3

REPORT INFORMATION
  Report Type: 
  Country: None (occurrence: None)
  Receive Date: 20080731
  Receipt Date: 20080728
  Transmission Date: 20090109
  Serious: Yes (Hospitalization)
  Sender: FDA-Public Use
  Company Number: US-BOEHRINGER INGELHEIM GMBH, GERMANY-2008-BP-11757BP

PATIENT
  Age: 42 Year
  Sex: Male
  Weight: 75 kg

DRUGS (5)
  1. TIPRANAVIR CAPSULES [Suspect]
     Indication: HIV INFECTION
     Route: 048
     Dates: start: 20080422, end: 20080722
  2. RITONAVIR [Suspect]
     Indication: HIV INFECTION
     Route: 048
     Dates: start: 20080422, end: 20080722
  3. RALTEGRAVIR [Suspect]
     Indication: HIV INFECTION
     Route: 048
     Dates: start: 20080422, end: 20080722
  4. FTC/TDF [Suspect]
     Indication: HIV INFECTION
     Route: 048
     Dates: start: 20080422, end: 20080722
  5. TRICOR [Concomitant]
     Route: 048

REACTIONS (1)
  - APPENDICITIS [None]
